FAERS Safety Report 5280898-8 (Version None)
Quarter: 2007Q1

REPORT INFORMATION
  Report Type: 
  Country: None (occurrence: None)
  Receive Date: 20061229
  Receipt Date: 20060626
  Transmission Date: 20070707
  Serious: Yes (Other)
  Sender: FDA-Public Use
  Company Number: 2006UW13486

PATIENT
  Age: 78 Year
  Sex: Female
  Weight: 65.77 kg

DRUGS (3)
  1. CRESTOR [Suspect]
     Indication: BLOOD CHOLESTEROL INCREASED
     Dosage: 10 MG
  2. TOPROL-XL [Concomitant]
  3. LEVOXYL [Concomitant]

REACTIONS (1)
  - EPISTAXIS [None]
